FAERS Safety Report 9050044 (Version 1)
Quarter: 2013Q1

REPORT INFORMATION
  Report Type: Spontaneous
  Country: US (occurrence: US)
  Receive Date: 20130204
  Receipt Date: 20130204
  Transmission Date: 20140127
  Serious: No
  Sender: FDA-Public Use
  Company Number: US-AMGEN-USASP2013002346

PATIENT
  Age: 54 Year
  Sex: Female
  Weight: 66.67 kg

DRUGS (4)
  1. ENBREL [Suspect]
     Indication: RHEUMATOID ARTHRITIS
     Dosage: 50 MG, QWK
     Route: 058
     Dates: start: 2004, end: 2013
  2. DEPOMEDROL [Concomitant]
     Dosage: 80 UNK, UNK
     Route: 030
  3. MACROBID                           /00024401/ [Concomitant]
     Dosage: UNK
  4. OMEPRAZOLE [Concomitant]
     Dosage: 20 MG, QD
     Route: 048

REACTIONS (7)
  - Rash generalised [Recovered/Resolved]
  - Anxiety [Recovered/Resolved]
  - Urticaria [Recovered/Resolved]
  - Dyspepsia [Unknown]
  - Rheumatoid arthritis [Unknown]
  - Cystitis interstitial [Unknown]
  - Urinary tract infection [Recovered/Resolved]
